FAERS Safety Report 13239998 (Version 1)
Quarter: 2017Q1

REPORT INFORMATION
  Report Type: Spontaneous
  Country: GB (occurrence: GB)
  Receive Date: 20170216
  Receipt Date: 20170216
  Transmission Date: 20170428
  Serious: Yes (Other)
  Sender: FDA-Public Use
  Company Number: GB-PFIZER INC-2017057653

PATIENT
  Sex: Male

DRUGS (2)
  1. VENLAFAXINE HCL [Suspect]
     Active Substance: VENLAFAXINE HYDROCHLORIDE
     Dosage: 2.75 G, UNK
     Route: 048
  2. THYROXINE [Suspect]
     Active Substance: LEVOTHYROXINE
     Dosage: 0.5 MG, UNK
     Route: 048

REACTIONS (4)
  - Electrocardiogram QT prolonged [Unknown]
  - Suicide attempt [Unknown]
  - Intentional overdose [Unknown]
  - Seizure [Unknown]
